FAERS Safety Report 5475862-X (Version None)
Quarter: 2007Q4

REPORT INFORMATION
  Report Type: 
  Country: None (occurrence: None)
  Receive Date: 20071003
  Receipt Date: 20070921
  Transmission Date: 20080405
  Serious: Yes (Death, Other)
  Sender: FDA-Public Use
  Company Number: HQWYE797424AUG07

PATIENT
  Sex: Female

DRUGS (1)
  1. MYLOTARG [Suspect]
     Indication: ACUTE MYELOID LEUKAEMIA RECURRENT
     Dosage: UNKNOWN
     Route: 042
     Dates: start: 20070401

REACTIONS (2)
  - PNEUMONIA [None]
  - VENOOCCLUSIVE LIVER DISEASE [None]
